FAERS Safety Report 20880584 (Version 3)
Quarter: 2022Q3

REPORT INFORMATION
  Report Type: Spontaneous
  Country: US (occurrence: US)
  Receive Date: 20220526
  Receipt Date: 20220810
  Transmission Date: 20221027
  Serious: Yes (Other)
  Sender: FDA-Public Use
  Company Number: US-BRISTOL-MYERS SQUIBB COMPANY-2022-042696

PATIENT
  Age: 72 Year
  Sex: Female

DRUGS (2)
  1. REVLIMID [Suspect]
     Active Substance: LENALIDOMIDE
     Indication: Plasma cell myeloma
     Dosage: ONCE DAILY FOR 14 DAYS OF 21 DAY CYCLE
     Route: 048
     Dates: start: 20220429
  2. REVLIMID [Suspect]
     Active Substance: LENALIDOMIDE
     Dosage: 1 CAPSULE DAILY ON DAYS 1-14 OF EACH 21 DAY CYCLE.
     Route: 048
     Dates: start: 20220503

REACTIONS (10)
  - Neuropathy peripheral [Not Recovered/Not Resolved]
  - Dry mouth [Recovering/Resolving]
  - Muscle spasms [Recovering/Resolving]
  - Nausea [Unknown]
  - Decreased appetite [Unknown]
  - Tremor [Recovered/Resolved]
  - Off label use [Unknown]
  - Abdominal distension [Recovering/Resolving]
  - Constipation [Recovering/Resolving]
  - Full blood count abnormal [Recovering/Resolving]

NARRATIVE: CASE EVENT DATE: 20220517
